FAERS Safety Report 12547209 (Version 1)
Quarter: 2016Q3

REPORT INFORMATION
  Report Type: Spontaneous
  Country: None (occurrence: US)
  Receive Date: 20160711
  Receipt Date: 20160711
  Transmission Date: 20161109
  Serious: No
  Sender: FDA-Public Use
  Company Number: US-RARE DISEASE THERAPEUTICS, INC.-1054901

PATIENT
  Age: 56 Year
  Sex: Female

DRUGS (11)
  1. AGGRENOX [Concomitant]
     Active Substance: ASPIRIN\DIPYRIDAMOLE
  2. DEMEROL [Concomitant]
     Active Substance: MEPERIDINE HYDROCHLORIDE
  3. VITAMIN C [Concomitant]
     Active Substance: ASCORBIC ACID
  4. PROBIOTICS NOS [Concomitant]
     Active Substance: PROBIOTICS NOS
  5. FOLIC ACID. [Concomitant]
     Active Substance: FOLIC ACID
  6. CYSTADANE [Suspect]
     Active Substance: BETAINE
     Dates: start: 20150326
  7. CLARITIN [Concomitant]
     Active Substance: LORATADINE
  8. LIPITOR [Concomitant]
     Active Substance: ATORVASTATIN CALCIUM
  9. SINGULAIR [Concomitant]
     Active Substance: MONTELUKAST SODIUM
  10. CALCIUM MAGNESIUM WITH VITAMIN D3 [Concomitant]
  11. MVI [Concomitant]
     Active Substance: VITAMINS

REACTIONS (2)
  - Underdose [None]
  - Vomiting [Recovered/Resolved with Sequelae]

NARRATIVE: CASE EVENT DATE: 20160512
